FAERS Safety Report 5140395-7 (Version None)
Quarter: 2006Q4

REPORT INFORMATION
  Report Type: 
  Country: None (occurrence: None)
  Receive Date: 20061024
  Receipt Date: 20061010
  Transmission Date: 20070319
  Serious: Yes (Other)
  Sender: FDA-Public Use
  Company Number: US200610001927

PATIENT
  Age: 52 Year
  Sex: Male

DRUGS (6)
  1. HUMALOG [Suspect]
     Indication: DIABETES MELLITUS
     Dates: start: 20050101
  2. HUMALOG PEN (HUMALOG PEN) [Concomitant]
  3. LANTUS [Concomitant]
  4. CLONIDINE [Concomitant]
  5. NORVASC [Concomitant]
  6. LOVASTATIN [Concomitant]

REACTIONS (5)
  - BLINDNESS [None]
  - BLOOD CHOLESTEROL INCREASED [None]
  - CEREBROVASCULAR ACCIDENT [None]
  - DIALYSIS [None]
  - RENAL FAILURE [None]
